FAERS Safety Report 13226285 (Version 2)
Quarter: 2017Q1

REPORT INFORMATION
  Report Type: Spontaneous
  Country: IT (occurrence: IT)
  Receive Date: 20170213
  Receipt Date: 20170224
  Transmission Date: 20170428
  Serious: Yes (Other)
  Sender: FDA-Public Use
  Company Number: IT-TEVA-739581ACC

PATIENT
  Age: 58 Year
  Sex: Male

DRUGS (1)
  1. CEFAZOLINA TEVA - 1 G POLVERE E SOLVENTE PER SOLUZIONE INIETTABILE [Suspect]
     Active Substance: CEFAZOLIN SODIUM
     Indication: PRODUCT USED FOR UNKNOWN INDICATION
     Route: 042

REACTIONS (3)
  - Erythema [Recovering/Resolving]
  - Anaphylactic reaction [Recovering/Resolving]
  - Face oedema [Recovering/Resolving]

NARRATIVE: CASE EVENT DATE: 20170201
